FAERS Safety Report 7273494-4 (Version None)
Quarter: 2011Q1

REPORT INFORMATION
  Report Type: 
  Country: None (occurrence: None)
  Receive Date: 20110128
  Receipt Date: 20110121
  Transmission Date: 20110831
  Serious: Yes (Hospitalization)
  Sender: FDA-Public Use
  Company Number: TPA2011A00096

PATIENT
  Age: 51 Year
  Sex: Male

DRUGS (2)
  1. ADENURIC (FEBUXOSTAT) [Suspect]
     Indication: HYPERURICAEMIA
     Dosage: 8I0 MG (80 MG, 1 IN 1 D), ORAL
     Route: 048
     Dates: start: 20100421, end: 20101201
  2. FLUVASTATIN [Concomitant]

REACTIONS (7)
  - THROMBOCYTOPENIA [None]
  - PYREXIA [None]
  - RASH SCARLATINIFORM [None]
  - LYMPHOPENIA [None]
  - PANCYTOPENIA [None]
  - C-REACTIVE PROTEIN INCREASED [None]
  - URTICARIA [None]
